FAERS Safety Report 16349922 (Version 7)
Quarter: 2021Q2

REPORT INFORMATION
  Report Type: Spontaneous
  Country: US (occurrence: US)
  Receive Date: 20190523
  Receipt Date: 20210624
  Transmission Date: 20210716
  Serious: Yes (Other)
  Sender: FDA-Public Use
  Company Number: US-PFIZER INC-2019219686

PATIENT
  Age: 46 Year
  Sex: Female
  Weight: 72 kg

DRUGS (5)
  1. PREMPRO [Suspect]
     Active Substance: ESTROGENS, CONJUGATED\MEDROXYPROGESTERONE ACETATE
     Indication: COLD SWEAT
     Dosage: 0.3 MG, DAILY
     Route: 048
  2. PREMPRO [Suspect]
     Active Substance: ESTROGENS, CONJUGATED\MEDROXYPROGESTERONE ACETATE
     Indication: DEPRESSION
     Dosage: (TAKING IT EVERY OTHER DAY, MAYBE EVERY THREE DAYS)
     Dates: end: 20190513
  3. CLONAZEPAM. [Concomitant]
     Active Substance: CLONAZEPAM
     Dosage: 0.5 MG
  4. PREMPRO [Suspect]
     Active Substance: ESTROGENS, CONJUGATED\MEDROXYPROGESTERONE ACETATE
     Indication: MUSCLE SPASMS
     Dosage: (I WAS TAKING 0.3/1.5 MG OF THE PREMPRO AND I WAS TAKING DAILY, JUST ONCE), DAILY
  5. PREMPRO [Suspect]
     Active Substance: ESTROGENS, CONJUGATED\MEDROXYPROGESTERONE ACETATE
     Indication: MENOPAUSAL SYMPTOMS
     Dosage: UNK, ALTERNATE DAY (TAKING EVERY OTHER DAY)

REACTIONS (9)
  - Blindness [Recovering/Resolving]
  - Disturbance in attention [Unknown]
  - Intentional product misuse [Unknown]
  - Drug dependence [Unknown]
  - Insomnia [Unknown]
  - Feeling of body temperature change [Unknown]
  - Affect lability [Unknown]
  - Malaise [Unknown]
  - Hyperhidrosis [Unknown]

NARRATIVE: CASE EVENT DATE: 2018
